FAERS Safety Report 14349047 (Version 1)
Quarter: 2018Q1

REPORT INFORMATION
  Report Type: Report from Study
  Country: None (occurrence: US)
  Receive Date: 20180104
  Receipt Date: 20180104
  Transmission Date: 20180509
  Serious: Yes (Hospitalization)
  Sender: FDA-Public Use
  Company Number: US-ABBVIE-17K-163-2205899-00

PATIENT
  Sex: Female

DRUGS (1)
  1. HUMIRA [Suspect]
     Active Substance: ADALIMUMAB
     Indication: PSORIASIS
     Route: 058

REACTIONS (14)
  - Concussion [Unknown]
  - Hepatic haemorrhage [Unknown]
  - Renal failure [Unknown]
  - Multiple fractures [Unknown]
  - Blood pressure increased [Unknown]
  - Drug screen positive [Unknown]
  - Pericardial effusion [Unknown]
  - Pleural effusion [Unknown]
  - Abdominal hernia [Unknown]
  - Loss of consciousness [Recovered/Resolved]
  - Fall [Unknown]
  - Peripheral artery stenosis [Unknown]
  - Blood disorder [Unknown]
  - Gallbladder perforation [Unknown]

NARRATIVE: CASE EVENT DATE: 2016
